FAERS Safety Report 23696081 (Version 1)
Quarter: 2024Q2

REPORT INFORMATION
  Report Type: Spontaneous
  Country: US (occurrence: US)
  Receive Date: 20240402
  Receipt Date: 20240402
  Transmission Date: 20240715
  Serious: Yes (Hospitalization, Other)
  Sender: FDA-Public Use
  Company Number: US-MLMSERVICE-20240304-4863795-1

PATIENT
  Age: 1 Year
  Sex: Female
  Weight: 12.4 kg

DRUGS (17)
  1. RIBAVIRIN [Suspect]
     Active Substance: RIBAVIRIN
     Indication: Measles
     Dosage: 33 MILLIGRAM/KILOGRAM DAY 1: 33MG
     Route: 042
  2. RIBAVIRIN [Suspect]
     Active Substance: RIBAVIRIN
     Dosage: 8 MILLIGRAM/KILOGRAM, 3 TIMES A DAY DAYS 6+: 8MG/KG/DOSE
     Route: 042
  3. RIBAVIRIN [Suspect]
     Active Substance: RIBAVIRIN
     Dosage: 16 MILLIGRAM/KILOGRAM, FOUR TIMES/DAY DAYS 1?5: 16MG/KG/DOSE Q6 HOURS FOR 16 DOSES
     Route: 042
  4. RIBAVIRIN [Suspect]
     Active Substance: RIBAVIRIN
     Dosage: 8 MILLIGRAM/KILOGRAM, 3 TIMES A DAY DAYS 6+: 8MG/KG/DOSE Q8H
     Route: 048
  5. CYCLOPHOSPHAMIDE [Suspect]
     Active Substance: CYCLOPHOSPHAMIDE
     Indication: Prophylaxis against transplant rejection
     Dosage: UNK
     Route: 065
  6. MELPHALAN [Suspect]
     Active Substance: MELPHALAN
     Indication: Prophylaxis against transplant rejection
     Dosage: UNK
     Route: 065
  7. METHYLPREDNISOLONE [Suspect]
     Active Substance: METHYLPREDNISOLONE
     Indication: Rash
     Dosage: 0.5 MILLIGRAM/KILOGRAM, FOUR TIMES/DAY
     Route: 065
  8. BUSULFAN [Suspect]
     Active Substance: BUSULFAN
     Indication: Prophylaxis against transplant rejection
     Dosage: UNK
     Route: 065
  9. RITUXIMAB [Suspect]
     Active Substance: RITUXIMAB
     Indication: Prophylaxis against transplant rejection
     Dosage: UNK
     Route: 065
  10. INOSINE PRANOBEX [Concomitant]
     Active Substance: INOSINE PRANOBEX
     Indication: Measles
     Dosage: 25MG/KG/DOSE Q6H
  11. INOSINE PRANOBEX [Concomitant]
     Active Substance: INOSINE PRANOBEX
     Dosage: 25MG/KG/DOSE Q6H
     Route: 048
  12. INTERFERON ALFA NOS [Concomitant]
     Active Substance: INTERFERON ALFA-2A OR INTERFERON ALFA-2B
     Indication: Measles
     Dosage: DAY 1-00,000 UNITS/M2
     Route: 037
  13. INTERFERON ALFA NOS [Concomitant]
     Active Substance: INTERFERON ALFA-2A OR INTERFERON ALFA-2B
     Dosage: DAY 5: 500,000 UNITS/M2
     Route: 037
  14. INTERFERON ALFA NOS [Concomitant]
     Active Substance: INTERFERON ALFA-2A OR INTERFERON ALFA-2B
     Dosage: DAY 8+: 1,000,000 UNITS/M2 ADMINISTERED TWICE WEEKLY
     Route: 037
  15. INTERFERON ALFA NOS [Concomitant]
     Active Substance: INTERFERON ALFA-2A OR INTERFERON ALFA-2B
     Dosage: DAY 3: 300,000 UNITS/M2
     Route: 037
  16. INTERFERON ALFA NOS [Concomitant]
     Active Substance: INTERFERON ALFA-2A OR INTERFERON ALFA-2B
     Dosage: DAY 2: 200,000 UNITS/M
     Route: 037
  17. INTERFERON ALFA NOS [Concomitant]
     Active Substance: INTERFERON ALFA-2A OR INTERFERON ALFA-2B
     Dosage: DAY 4: 400,000 UNITS/M2
     Route: 037

REACTIONS (6)
  - Neutropenia [Not Recovered/Not Resolved]
  - Cerebral atrophy [Unknown]
  - Encephalitis [Unknown]
  - Respiratory failure [Unknown]
  - Drug ineffective [Unknown]
  - Off label use [Unknown]
